FAERS Safety Report 14748640 (Version 1)
Quarter: 2018Q2

REPORT INFORMATION
  Report Type: Spontaneous
  Country: US (occurrence: US)
  Receive Date: 20180411
  Receipt Date: 20180411
  Transmission Date: 20180711
  Serious: No
  Sender: FDA-Public Use
  Company Number: US-AMGEN-USASP2017172452

PATIENT
  Sex: Female

DRUGS (2)
  1. PROLIA [Suspect]
     Active Substance: DENOSUMAB
     Indication: OSTEOPOROSIS POSTMENOPAUSAL
     Dosage: 60 MG, UNK
     Route: 065
  2. LEVOTHYROXINE. [Concomitant]
     Active Substance: LEVOTHYROXINE
     Dosage: UNK

REACTIONS (7)
  - Diaphragmalgia [Unknown]
  - Musculoskeletal chest pain [Unknown]
  - Peripheral swelling [Unknown]
  - Injection site pain [Unknown]
  - Pain in extremity [Unknown]
  - Ecchymosis [Unknown]
  - Rash [Unknown]
